FAERS Safety Report 11619067 (Version 1)
Quarter: 2015Q4

REPORT INFORMATION
  Report Type: Spontaneous
  Country: AU (occurrence: AU)
  Receive Date: 20151012
  Receipt Date: 20151012
  Transmission Date: 20160304
  Serious: Yes (Other)
  Sender: FDA-Public Use
  Company Number: AU-TOLMAR, INC.-2015AU008493

PATIENT
  Sex: Male

DRUGS (1)
  1. ELIGARD [Suspect]
     Active Substance: LEUPROLIDE ACETATE
     Indication: PROSTATE CANCER
     Dosage: 22.5 MG, Q3MONTHS
     Route: 065
     Dates: start: 20141219

REACTIONS (7)
  - Pyrexia [Unknown]
  - Malaise [Unknown]
  - Eye pain [Unknown]
  - Pain [Unknown]
  - Ocular hyperaemia [Unknown]
  - Ocular retrobulbar haemorrhage [Not Recovered/Not Resolved]
  - Atrophy of globe [Not Recovered/Not Resolved]
